FAERS Safety Report 7032611-1 (Version None)
Quarter: 2010Q4

REPORT INFORMATION
  Report Type: 
  Country: None (occurrence: None)
  Receive Date: 20101007
  Receipt Date: 20100927
  Transmission Date: 20110411
  Serious: Yes (Other)
  Sender: FDA-Public Use
  Company Number: US-ROCHE-729994

PATIENT
  Sex: Female

DRUGS (1)
  1. XELODA [Suspect]
     Dosage: SINCE 2.75 YEARS
     Route: 065
     Dates: start: 20070101, end: 20100910

REACTIONS (3)
  - DIARRHOEA [None]
  - OBSTRUCTION GASTRIC [None]
  - WEIGHT DECREASED [None]
